FAERS Safety Report 19306072 (Version 4)
Quarter: 2021Q3

REPORT INFORMATION
  Report Type: Spontaneous
  Country: AU (occurrence: AU)
  Receive Date: 20210525
  Receipt Date: 20210914
  Transmission Date: 20211014
  Serious: Yes (Disabling, Other)
  Sender: FDA-Public Use
  Company Number: NVSC2021AU115873

PATIENT
  Age: 44 Year
  Sex: Male

DRUGS (10)
  1. KETOTIFEN [Suspect]
     Active Substance: KETOTIFEN
     Indication: MAST CELL ACTIVATION SYNDROME
     Dosage: 1 MG, TDS
     Route: 065
  2. KETOTIFEN [Suspect]
     Active Substance: KETOTIFEN
     Dosage: 1 MG, QD
     Route: 048
  3. CETIRIZINE [Suspect]
     Active Substance: CETIRIZINE HYDROCHLORIDE
     Dosage: UNK (1?2 PER DAY)
     Route: 048
  4. POLARAMINE [Concomitant]
     Active Substance: DEXCHLORPHENIRAMINE MALEATE
     Indication: PRODUCT USED FOR UNKNOWN INDICATION
     Dosage: UNK
     Route: 065
  5. BACTREX [Concomitant]
     Indication: PRODUCT USED FOR UNKNOWN INDICATION
     Dosage: 1 DF, QD
     Route: 065
  6. SODIUM CROMOGLYCATE [Concomitant]
     Active Substance: CROMOLYN SODIUM
     Indication: PRODUCT USED FOR UNKNOWN INDICATION
     Dosage: 200 MG, TDS
     Route: 065
  7. ZYRTEC [Concomitant]
     Active Substance: CETIRIZINE HYDROCHLORIDE
     Indication: PRODUCT USED FOR UNKNOWN INDICATION
     Dosage: 1 DF, QD
     Route: 065
  8. PALMITOYLETHANOLAMIDE (PEA) [Concomitant]
     Indication: PRODUCT USED FOR UNKNOWN INDICATION
     Dosage: 800 MG, QD
     Route: 065
  9. CETIRIZINE [Suspect]
     Active Substance: CETIRIZINE HYDROCHLORIDE
     Indication: MAST CELL ACTIVATION SYNDROME
     Dosage: UNK
     Route: 065
  10. RESOTRANS [Concomitant]
     Active Substance: PRUCALOPRIDE SUCCINATE
     Indication: PRODUCT USED FOR UNKNOWN INDICATION
     Dosage: 1 DF, QD
     Route: 065

REACTIONS (40)
  - Weight decreased [Unknown]
  - Asthenia [Unknown]
  - Fatigue [Unknown]
  - Dry eye [Unknown]
  - Eye pain [Unknown]
  - Product use in unapproved indication [Unknown]
  - Disability [Unknown]
  - Feeling abnormal [Unknown]
  - Hypertension [Unknown]
  - Depression [Unknown]
  - Abdominal distension [Unknown]
  - Erectile dysfunction [Unknown]
  - Dizziness [Unknown]
  - Confusional state [Unknown]
  - Thinking abnormal [Unknown]
  - Hypersensitivity [Unknown]
  - Gait disturbance [Unknown]
  - Mast cell activation syndrome [Unknown]
  - Abdominal discomfort [Unknown]
  - Eye pruritus [Unknown]
  - Irritability [Unknown]
  - Ocular hyperaemia [Unknown]
  - Disturbance in attention [Unknown]
  - Hypotension [Unknown]
  - Constipation [Unknown]
  - Pruritus [Unknown]
  - Decreased appetite [Unknown]
  - Inflammation [Unknown]
  - Tooth loss [Unknown]
  - Headache [Unknown]
  - Insomnia [Unknown]
  - Nasal pruritus [Unknown]
  - Nausea [Unknown]
  - Drug ineffective [Unknown]
  - Anxiety [Unknown]
  - Food allergy [Unknown]
  - Vomiting [Unknown]
  - Gingival bleeding [Unknown]
  - Noninfective gingivitis [Unknown]
  - Amnesia [Unknown]

NARRATIVE: CASE EVENT DATE: 202105
